FAERS Safety Report 8197157-6 (Version None)
Quarter: 2012Q1

REPORT INFORMATION
  Report Type: 
  Country: None (occurrence: None)
  Receive Date: 20120309
  Receipt Date: 20120224
  Transmission Date: 20120608
  Serious: Yes (Other)
  Sender: FDA-Public Use
  Company Number: BR-AMGEN-BRASP2012011967

PATIENT
  Age: 51 Year
  Sex: Female
  Weight: 76 kg

DRUGS (3)
  1. ENBREL [Suspect]
     Indication: RHEUMATOID ARTHRITIS
     Dosage: 50MG WEEKLY POWDER AND SOLVENT FOR SOLUTION FOR INJECTION
     Route: 058
     Dates: start: 20111110, end: 20120206
  2. ENBREL [Suspect]
     Dosage: 50 MG, ONCE WEEKLY
     Route: 058
     Dates: start: 20120206, end: 20120214
  3. ACETAMINOPHEN [Concomitant]
     Indication: HEADACHE
     Dosage: UNK

REACTIONS (12)
  - DYSPNOEA [None]
  - HEADACHE [None]
  - THROAT IRRITATION [None]
  - DRY THROAT [None]
  - TONGUE DRY [None]
  - NASAL CONGESTION [None]
  - INJECTION SITE WARMTH [None]
  - HYPERSENSITIVITY [None]
  - COUGH [None]
  - SWOLLEN TONGUE [None]
  - GLOSSODYNIA [None]
  - INJECTION SITE ERYTHEMA [None]
